FAERS Safety Report 17519340 (Version 2)
Quarter: 2021Q1

REPORT INFORMATION
  Report Type: Spontaneous
  Country: US (occurrence: US)
  Receive Date: 20200310
  Receipt Date: 20210312
  Transmission Date: 20210419
  Serious: No
  Sender: FDA-Public Use
  Company Number: US-ALLERGAN-1924312US

PATIENT
  Sex: Female

DRUGS (2)
  1. CRESTOR [Concomitant]
     Active Substance: ROSUVASTATIN CALCIUM
     Indication: BLOOD TRIGLYCERIDES DECREASED
     Dosage: 50 MG, 3 TIMES PER WEEK
     Dates: start: 201905
  2. ESTRACE [Suspect]
     Active Substance: ESTRADIOL
     Indication: VULVOVAGINAL DRYNESS
     Dosage: UNK
     Route: 067
     Dates: start: 2014, end: 201810

REACTIONS (3)
  - Smear cervix abnormal [Recovered/Resolved]
  - Human papilloma virus test positive [Recovered/Resolved]
  - Drug ineffective [Unknown]
